FAERS Safety Report 9214474 (Version 2)
Quarter: 2013Q2

REPORT INFORMATION
  Report Type: Spontaneous
  Country: JP (occurrence: JP)
  Receive Date: 20130405
  Receipt Date: 20130412
  Transmission Date: 20140414
  Serious: Yes (Death, Other)
  Sender: FDA-Public Use
  Company Number: JP-ROCHE-1202964

PATIENT
  Age: 56 Year
  Sex: Male
  Weight: 65 kg

DRUGS (2)
  1. AVASTIN [Suspect]
     Indication: NON-SMALL CELL LUNG CANCER
     Dosage: DOSE INTERVAL: 3-4W
     Route: 041
     Dates: start: 20121107, end: 20130305
  2. AVASTIN [Suspect]
     Indication: LUNG ADENOCARCINOMA METASTATIC

REACTIONS (3)
  - Haematuria [Not Recovered/Not Resolved]
  - Haemoptysis [Fatal]
  - Bronchopleural fistula [Unknown]
